FAERS Safety Report 10354774 (Version 1)
Quarter: 2014Q3

REPORT INFORMATION
  Report Type: Spontaneous
  Country: US (occurrence: None)
  Receive Date: 20140721
  Receipt Date: 20140721
  Transmission Date: 20150326
  Serious: Yes (Death, Hospitalization)
  Sender: FDA-Public Use
  Company Number: US-145557

PATIENT
  Age: 63 Year
  Sex: Female

DRUGS (1)
  1. BOTULISM ANTITOXIN [Suspect]
     Active Substance: BOTULISM ANTITOXIN
     Indication: BOTULISM
     Dates: start: 20140612, end: 20140612

REACTIONS (5)
  - Sepsis [None]
  - Septic shock [None]
  - Increased bronchial secretion [None]
  - Hypotension [None]
  - Staphylococcal sepsis [None]

NARRATIVE: CASE EVENT DATE: 201406
